FAERS Safety Report 18592851 (Version 1)
Quarter: 2020Q4

REPORT INFORMATION
  Report Type: Spontaneous
  Country: US (occurrence: US)
  Receive Date: 20201208
  Receipt Date: 20201208
  Transmission Date: 20210114
  Serious: No
  Sender: FDA-Public Use
  Company Number: US-BAYER-2020-256188

PATIENT
  Age: 52 Year
  Sex: Male

DRUGS (1)
  1. SORAFENIB (RAF KINASE INHIBITOR) [Suspect]
     Active Substance: SORAFENIB
     Indication: CHRONIC EOSINOPHILIC LEUKAEMIA
     Dosage: 400 MG, BID
     Route: 048

REACTIONS (3)
  - Off label use [None]
  - Product use in unapproved indication [None]
  - Therapeutic response unexpected [None]
